FAERS Safety Report 9865143 (Version 2)
Quarter: 2015Q2

REPORT INFORMATION
  Report Type: Spontaneous
  Country: DK (occurrence: DK)
  Receive Date: 20140203
  Receipt Date: 20150401
  Transmission Date: 20150821
  Serious: Yes (Hospitalization)
  Sender: FDA-Public Use
  Company Number: PHHY2014DK009574

PATIENT
  Age: 46 Year
  Sex: Female

DRUGS (1)
  1. DICLON RAPID [Suspect]
     Active Substance: DICLOFENAC
     Indication: MYALGIA
     Dosage: 75 MG, QD
     Route: 048
     Dates: start: 200611, end: 20100820

REACTIONS (9)
  - Confusional state [Not Recovered/Not Resolved]
  - Fatigue [Not Recovered/Not Resolved]
  - Balance disorder [Not Recovered/Not Resolved]
  - Amnesia [Not Recovered/Not Resolved]
  - Muscular weakness [Not Recovered/Not Resolved]
  - Disturbance in attention [Not Recovered/Not Resolved]
  - Hemiparesis [Recovered/Resolved]
  - Limb discomfort [Not Recovered/Not Resolved]
  - Cerebral thrombosis [Recovered/Resolved]

NARRATIVE: CASE EVENT DATE: 2010
